FAERS Safety Report 6662237-0 (Version None)
Quarter: 2010Q1

REPORT INFORMATION
  Report Type: 
  Country: None (occurrence: None)
  Receive Date: 20100331
  Receipt Date: 20100318
  Transmission Date: 20100710
  Serious: Yes (Death)
  Sender: FDA-Public Use
  Company Number: GB-MYLANLABS-2010S1004657

PATIENT
  Age: 67 Year
  Sex: Male

DRUGS (2)
  1. WARFARIN SODIUM [Suspect]
     Indication: ATRIAL FIBRILLATION
     Route: 048
  2. WARFARIN SODIUM [Suspect]
     Indication: CEREBROVASCULAR ACCIDENT
     Route: 048

REACTIONS (3)
  - RENAL FAILURE ACUTE [None]
  - SEPSIS [None]
  - UPPER GASTROINTESTINAL HAEMORRHAGE [None]
